FAERS Safety Report 5420212-8 (Version None)
Quarter: 2007Q3

REPORT INFORMATION
  Report Type: 
  Country: None (occurrence: None)
  Receive Date: 20070820
  Receipt Date: 20070810
  Transmission Date: 20080115
  Serious: Yes (Other)
  Sender: FDA-Public Use
  Company Number: AU-PFIZER INC-2007066920

PATIENT
  Age: 67 Year
  Sex: Female

DRUGS (12)
  1. LIPITOR [Suspect]
     Route: 048
  2. NEURONTIN [Suspect]
     Indication: DIABETIC NEUROPATHY
     Route: 048
  3. LIPIDIL [Concomitant]
  4. NEXIUM [Concomitant]
     Dosage: DAILY DOSE:40MG
  5. DITROPAN [Concomitant]
     Dosage: DAILY DOSE:5MG
  6. FRUSEMIDE [Concomitant]
     Dosage: DAILY DOSE:40MG
  7. ATACAND [Concomitant]
     Dosage: DAILY DOSE:16MG
  8. RAMIPRIL [Concomitant]
     Dosage: DAILY DOSE:10MG
  9. POTASSIUM CHLORIDE [Concomitant]
  10. METFORMIN HCL [Concomitant]
  11. LANOXIN [Concomitant]
     Dosage: DAILY DOSE:25MCG
  12. JEZIL [Concomitant]

REACTIONS (1)
  - BLOOD CHOLESTEROL INCREASED [None]
